FAERS Safety Report 6272495-2 (Version None)
Quarter: 2009Q3

REPORT INFORMATION
  Report Type: 
  Country: None (occurrence: None)
  Receive Date: 20090717
  Receipt Date: 20090708
  Transmission Date: 20100115
  Serious: Yes (Hospitalization)
  Sender: FDA-Public Use
  Company Number: US-B.I. PHARMACEUTICALS,INC./RIDGEFIELD-2009-BP-07493BP

PATIENT
  Sex: Female

DRUGS (10)
  1. MIRAPEX [Suspect]
     Indication: RESTLESS LEGS SYNDROME
     Dosage: 7.5 MG
     Route: 048
     Dates: start: 20090501, end: 20090601
  2. MIRAPEX [Suspect]
     Dosage: 0.75 MG
     Route: 048
     Dates: start: 20030101, end: 20090501
  3. REQUIP [Concomitant]
  4. SERTRALINE [Concomitant]
  5. FLEXERIL [Concomitant]
  6. SINGULAIR [Concomitant]
  7. ADVAIR HFA [Concomitant]
  8. FLONASE [Concomitant]
  9. ZOLPIDEM [Concomitant]
  10. SILVESTATINS [Concomitant]
     Indication: BLOOD CHOLESTEROL

REACTIONS (2)
  - ARTHRITIS [None]
  - WEIGHT INCREASED [None]
